FAERS Safety Report 15029300 (Version 3)
Quarter: 2019Q1

REPORT INFORMATION
  Report Type: Spontaneous
  Country: RO (occurrence: RO)
  Receive Date: 20180619
  Receipt Date: 20190226
  Transmission Date: 20190417
  Serious: Yes (Hospitalization, Other)
  Sender: FDA-Public Use
  Company Number: RO-MYLANLABS-2018M1044223

PATIENT
  Age: 5 Year
  Sex: Female
  Weight: 27 kg

DRUGS (5)
  1. LAMOTRIGINE. [Interacting]
     Active Substance: LAMOTRIGINE
     Dosage: 50 MG, QD
  2. LAMOTRIGINE. [Interacting]
     Active Substance: LAMOTRIGINE
     Dosage: 50 MG, BID
  3. LAMOTRIGINE. [Interacting]
     Active Substance: LAMOTRIGINE
     Dosage: 100 MILLIGRAM, QD
  4. DEPAKINE                           /00228501/ [Interacting]
     Active Substance: VALPROIC ACID
     Indication: EPILEPSY
     Dosage: 600 MG, QD (WEEK 1- 225 MG/DAY, WEEK 3- 250 MG/DAY)
  5. LAMOTRIGINE. [Suspect]
     Active Substance: LAMOTRIGINE
     Indication: EPILEPSY
     Dosage: WEEK 1 - 25 MG TWICE DAILY, WEEK 3 - 50 MG TWICE DAILY

REACTIONS (24)
  - Rash [Recovering/Resolving]
  - Dysphagia [Recovering/Resolving]
  - Facial pain [Recovering/Resolving]
  - Condition aggravated [Recovering/Resolving]
  - Stevens-Johnson syndrome [Recovering/Resolving]
  - Rash maculo-papular [Recovering/Resolving]
  - Conjunctival hyperaemia [Recovering/Resolving]
  - Pharyngeal inflammation [Recovering/Resolving]
  - Rotavirus infection [Recovering/Resolving]
  - Vomiting [Recovering/Resolving]
  - Haemorrhage [Recovering/Resolving]
  - Salivary hypersecretion [Unknown]
  - Drug ineffective [Recovering/Resolving]
  - Abdominal pain [Recovering/Resolving]
  - Rash vesicular [Recovering/Resolving]
  - Pyrexia [Recovering/Resolving]
  - Pruritus [Recovering/Resolving]
  - Dermatitis bullous [Recovering/Resolving]
  - Chapped lips [Recovering/Resolving]
  - Lip dry [Recovering/Resolving]
  - Epilepsy [Recovered/Resolved]
  - Diarrhoea [Recovering/Resolving]
  - Gastroenteritis norovirus [Recovering/Resolving]
  - Labelled drug-drug interaction medication error [Unknown]
